FAERS Safety Report 9370584 (Version 1)
Quarter: 2013Q2

REPORT INFORMATION
  Report Type: Spontaneous
  Country: DE (occurrence: DE)
  Receive Date: 20130626
  Receipt Date: 20130626
  Transmission Date: 20140414
  Serious: Yes (Other)
  Sender: FDA-Public Use
  Company Number: DE-ELI_LILLY_AND_COMPANY-DE201306006233

PATIENT
  Sex: Male

DRUGS (4)
  1. CIALIS [Suspect]
     Indication: ERECTILE DYSFUNCTION
     Dosage: 20 MG, UNKNOWN
     Route: 048
     Dates: start: 2008
  2. RAMIPRIL [Concomitant]
     Dosage: 1 DF, UNKNOWN
  3. AMLODIPIN                          /00972401/ [Concomitant]
     Dosage: 1 DF, UNKNOWN
  4. CAVERJECT IMPULSE [Concomitant]
     Dosage: 1 DF, UNKNOWN

REACTIONS (1)
  - Visual acuity reduced [Not Recovered/Not Resolved]
